FAERS Safety Report 9877753 (Version 2)
Quarter: 2014Q1

REPORT INFORMATION
  Report Type: Other
  Country: US (occurrence: US)
  Receive Date: 20140206
  Receipt Date: 20140206
  Transmission Date: 20141002
  Serious: No
  Sender: FDA-Public Use
  Company Number: US-ACORDA-ACO_39052_2013

PATIENT
  Age: 60 Year
  Sex: Female
  Weight: 86.17 kg

DRUGS (5)
  1. AMPYRA [Suspect]
     Indication: MULTIPLE SCLEROSIS
     Dosage: 10 MG, BID
     Route: 048
     Dates: start: 201310
  2. IMITREX [Concomitant]
     Indication: MIGRAINE
     Dosage: 100 UNK, PRN
     Route: 048
  3. BACLOFEN [Concomitant]
     Indication: MULTIPLE SCLEROSIS
     Dosage: 40 UNK, QHS
     Route: 048
  4. TIZANIDINE [Concomitant]
     Indication: MULTIPLE SCLEROSIS
     Dosage: 2, UNK, QHS
     Route: 048
  5. COPAXONE [Concomitant]
     Indication: MULTIPLE SCLEROSIS
     Dosage: UNK, QD
     Route: 058

REACTIONS (1)
  - Cellulitis [Recovered/Resolved]
